FAERS Safety Report 9807580 (Version 1)
Quarter: 2014Q1

REPORT INFORMATION
  Report Type: Spontaneous
  Country: US (occurrence: US)
  Receive Date: 20140110
  Receipt Date: 20140110
  Transmission Date: 20141002
  Serious: No
  Sender: FDA-Public Use
  Company Number: US-SANOFI-AVENTIS-2013SA041776

PATIENT
  Sex: Female

DRUGS (2)
  1. PLAVIX [Suspect]
     Indication: CARDIOVASCULAR DISORDER
     Route: 048
  2. CRESTOR [Concomitant]

REACTIONS (3)
  - Weight decreased [Unknown]
  - Fall [Unknown]
  - Contusion [Unknown]
